FAERS Safety Report 5290930-3 (Version None)
Quarter: 2007Q2

REPORT INFORMATION
  Report Type: 
  Country: None (occurrence: None)
  Receive Date: 20070409
  Receipt Date: 20070327
  Transmission Date: 20071010
  Serious: Yes (Disabling, Other)
  Sender: FDA-Public Use
  Company Number: JP-NOVOPROD-261190

PATIENT
  Age: 39 Year
  Sex: Male
  Weight: 71 kg

DRUGS (3)
  1. NOVORAPID CHU FLEXPEN [Suspect]
     Indication: DIABETES MELLITUS INSULIN-DEPENDENT
     Dosage: UNK IU, QD
     Route: 058
     Dates: start: 20060215, end: 20060616
  2. NOVOLIN N [Suspect]
     Indication: DIABETES MELLITUS INSULIN-DEPENDENT
     Dosage: UNK IU, QD
     Route: 058
     Dates: start: 20060215, end: 20060616
  3. TICLOPIDINE HCL [Concomitant]
     Dates: start: 20030201, end: 20060315

REACTIONS (2)
  - ANTI-INSULIN ANTIBODY [None]
  - INJECTION SITE REACTION [None]
